FAERS Safety Report 25593404 (Version 1)
Quarter: 2025Q3

REPORT INFORMATION
  Report Type: Report from Study
  Country: US (occurrence: US)
  Receive Date: 20250722
  Receipt Date: 20250722
  Transmission Date: 20251020
  Serious: Yes (Other)
  Sender: ALEXION PHARMACEUTICALS
  Company Number: US-AstraZeneca-CH-00911381A

PATIENT
  Sex: Female

DRUGS (1)
  1. ACALABRUTINIB [Suspect]
     Active Substance: ACALABRUTINIB
     Indication: Chronic lymphocytic leukaemia
     Dosage: 100 MILLIGRAM, BID
     Dates: start: 202210

REACTIONS (13)
  - Ankle fracture [Unknown]
  - Cellulitis [Unknown]
  - Diarrhoea [Unknown]
  - Compression fracture [Unknown]
  - Product dose omission issue [Unknown]
  - Hypoacusis [Unknown]
  - Emotional disorder [Unknown]
  - Arthralgia [Unknown]
  - Myalgia [Unknown]
  - Fall [Unknown]
  - Back disorder [Unknown]
  - Blood potassium decreased [Unknown]
  - Clostridium difficile infection [Unknown]
